FAERS Safety Report 21723145 (Version 1)
Quarter: 2022Q4

REPORT INFORMATION
  Report Type: Spontaneous
  Country: AR (occurrence: AR)
  Receive Date: 20221213
  Receipt Date: 20221213
  Transmission Date: 20230113
  Serious: Yes (Other)
  Sender: FDA-Public Use
  Company Number: AR-MEDEXUS PHARMA, INC.-2022MED00465

PATIENT
  Age: 11 Year
  Sex: Male

DRUGS (3)
  1. METHOTREXATE [Suspect]
     Active Substance: METHOTREXATE
     Indication: Acute lymphocytic leukaemia
     Dosage: 2 G/M2 VIA INFUSION OVER 24 HOURS
     Route: 042
  2. METHOTREXATE [Suspect]
     Active Substance: METHOTREXATE
     Dosage: AGE-APPROPRIATE DOSES
     Route: 037
  3. LEUCOVORIN [Concomitant]
     Active Substance: LEUCOVORIN
     Indication: Acute lymphocytic leukaemia
     Dosage: 3 DOSES AT 15 MG/M2
     Route: 065

REACTIONS (2)
  - Neurotoxicity [Recovered/Resolved]
  - White matter lesion [Recovered/Resolved]
